FAERS Safety Report 8768470 (Version 1)
Quarter: 2012Q4

REPORT INFORMATION
  Report Type: 
  Country: US (occurrence: US)
  Receive Date: 20120904
  Receipt Date: 20120904
  Transmission Date: 20130627
  Serious: No
  Sender: FDA-Public Use
  Company Number: US-AMGEN-USASP2012053178

PATIENT
  Age: 11 Year

DRUGS (2)
  1. ENBREL [Suspect]
     Indication: PSORIASIS
     Dosage: UNK
  2. MTX                                /00113801/ [Concomitant]
     Indication: PSORIASIS
     Dosage: UNK

REACTIONS (1)
  - Drug ineffective [Unknown]
